FAERS Safety Report 18101275 (Version 5)
Quarter: 2021Q2

REPORT INFORMATION
  Report Type: Report from Study
  Country: US (occurrence: US)
  Receive Date: 20200801
  Receipt Date: 20210518
  Transmission Date: 20210717
  Serious: No
  Sender: FDA-Public Use
  Company Number: US-SHIRE-US202024640

PATIENT
  Sex: Female
  Weight: 63 kg

DRUGS (11)
  1. FLONASE [Concomitant]
     Active Substance: FLUTICASONE PROPIONATE
     Route: 065
  2. VALTREX [Concomitant]
     Active Substance: VALACYCLOVIR HYDROCHLORIDE
     Route: 065
  3. ACETAMINOPHEN. [Concomitant]
     Active Substance: ACETAMINOPHEN
     Route: 065
  4. EPINEPHRINE. [Concomitant]
     Active Substance: EPINEPHRINE
     Route: 065
  5. CUVITRU [Suspect]
     Active Substance: HUMAN IMMUNOGLOBULIN G
     Indication: IMMUNODEFICIENCY
     Dosage: 8 GRAM, 1/WEEK
     Route: 058
     Dates: start: 20200416
  6. PROTONIX [OMEPRAZOLE] [Concomitant]
     Active Substance: OMEPRAZOLE
     Route: 065
  7. DIPHENHYDRAMINE. [Concomitant]
     Active Substance: DIPHENHYDRAMINE
     Route: 065
  8. LMX4 [Concomitant]
     Active Substance: LIDOCAINE
     Route: 065
  9. ZYRTEC [Concomitant]
     Active Substance: CETIRIZINE HYDROCHLORIDE
     Route: 065
  10. BUPROPION HYDROCHLORIDE XL [Concomitant]
     Active Substance: BUPROPION HYDROCHLORIDE
     Route: 065
  11. ESCITALOPRAM [Concomitant]
     Active Substance: ESCITALOPRAM OXALATE
     Route: 065

REACTIONS (9)
  - Viral infection [Unknown]
  - Sinusitis [Unknown]
  - Infectious mononucleosis [Unknown]
  - Nasopharyngitis [Unknown]
  - Fatigue [Unknown]
  - Condition aggravated [Unknown]
  - Headache [Unknown]
  - Stress [Unknown]
  - Nausea [Unknown]
